FAERS Safety Report 17930969 (Version 7)
Quarter: 2020Q4

REPORT INFORMATION
  Report Type: Spontaneous
  Country: US (occurrence: US)
  Receive Date: 20200623
  Receipt Date: 20201026
  Transmission Date: 20210113
  Serious: Yes (Hospitalization, Other)
  Sender: FDA-Public Use
  Company Number: US-ASTRAZENECA-2020SE77109

PATIENT
  Age: 13500 Day
  Sex: Male
  Weight: 210 kg

DRUGS (62)
  1. FARXIGA [Suspect]
     Active Substance: DAPAGLIFLOZIN PROPANEDIOL
     Indication: BLOOD PRESSURE DECREASED
     Route: 048
     Dates: start: 20180506, end: 20190806
  2. CEFPODOXIME [Concomitant]
     Active Substance: CEFPODOXIME
  3. PREDNISONE. [Concomitant]
     Active Substance: PREDNISONE
  4. LEVEMIR [Concomitant]
     Active Substance: INSULIN DETEMIR
     Route: 065
     Dates: start: 20190225
  5. XYLOCAINE [Concomitant]
     Active Substance: LIDOCAINE HYDROCHLORIDE
     Route: 065
     Dates: start: 20190225
  6. LOPRESSOR [Concomitant]
     Active Substance: METOPROLOL TARTRATE
     Route: 065
     Dates: start: 20190225
  7. ZOFRAN [Concomitant]
     Active Substance: ONDANSETRON HYDROCHLORIDE
     Route: 065
     Dates: start: 20190212
  8. CENTRUM [Concomitant]
     Active Substance: VITAMINS
     Route: 065
     Dates: start: 20190228
  9. ENTRESTO [Concomitant]
     Active Substance: SACUBITRIL\VALSARTAN
  10. METFORMIN [Concomitant]
     Active Substance: METFORMIN HYDROCHLORIDE
  11. CARVEDILOL. [Concomitant]
     Active Substance: CARVEDILOL
  12. HYDRALAZINE [Concomitant]
     Active Substance: HYDRALAZINE HYDROCHLORIDE
  13. GLIPIZIDE. [Concomitant]
     Active Substance: GLIPIZIDE
  14. DOXYCYCLINE. [Concomitant]
     Active Substance: DOXYCYCLINE
  15. IPRATROPIUM [Concomitant]
     Active Substance: IPRATROPIUM
  16. CLARITHROMYCIN. [Concomitant]
     Active Substance: CLARITHROMYCIN
  17. NEURONTIN [Concomitant]
     Active Substance: GABAPENTIN
     Route: 065
     Dates: start: 20170328
  18. ZINC. [Concomitant]
     Active Substance: ZINC
     Dates: start: 20190313
  19. MINOCYCLINE [Concomitant]
     Active Substance: MINOCYCLINE HYDROCHLORIDE
  20. FARXIGA [Suspect]
     Active Substance: DAPAGLIFLOZIN PROPANEDIOL
     Indication: WEIGHT DECREASED
     Dosage: TAKE ONE TABLET BY MOUNT EVERY MORNING ONCE A DAY
     Route: 048
     Dates: start: 20181122
  21. FARXIGA [Suspect]
     Active Substance: DAPAGLIFLOZIN PROPANEDIOL
     Indication: BLOOD PRESSURE DECREASED
     Dosage: TAKE ONE TABLET BY MOUNT EVERY MORNING ONCE A DAY
     Route: 048
     Dates: start: 20181122
  22. OLMESARTAN [Concomitant]
     Active Substance: OLMESARTAN
  23. ROSUVASTATIN. [Concomitant]
     Active Substance: ROSUVASTATIN
  24. AMLODIPINE [Concomitant]
     Active Substance: AMLODIPINE BESYLATE
  25. PRAVASTATIN. [Concomitant]
     Active Substance: PRAVASTATIN
  26. PROAIR HFA [Concomitant]
     Active Substance: ALBUTEROL SULFATE
  27. LYRICA [Concomitant]
     Active Substance: PREGABALIN
     Route: 065
     Dates: start: 20190228
  28. HUMALOG [Concomitant]
     Active Substance: INSULIN LISPRO
  29. FARXIGA [Suspect]
     Active Substance: DAPAGLIFLOZIN PROPANEDIOL
     Indication: TYPE 2 DIABETES MELLITUS
     Dosage: TAKE ONE TABLET BY MOUNT EVERY MORNING ONCE A DAY
     Route: 048
     Dates: start: 20181122
  30. CLINDAMYCIN. [Concomitant]
     Active Substance: CLINDAMYCIN
  31. METRONIDAZOLE. [Concomitant]
     Active Substance: METRONIDAZOLE
  32. LANTUS [Concomitant]
     Active Substance: INSULIN GLARGINE
  33. ROSUVASTATIN. [Concomitant]
     Active Substance: ROSUVASTATIN
  34. FARXIGA [Suspect]
     Active Substance: DAPAGLIFLOZIN PROPANEDIOL
     Indication: TYPE 2 DIABETES MELLITUS
     Route: 048
     Dates: start: 20180506, end: 20190806
  35. FARXIGA [Suspect]
     Active Substance: DAPAGLIFLOZIN PROPANEDIOL
     Indication: WEIGHT DECREASED
     Route: 048
     Dates: start: 20180506, end: 20190806
  36. FUROSEMIDE. [Concomitant]
     Active Substance: FUROSEMIDE
  37. BYSTOLIC [Concomitant]
     Active Substance: NEBIVOLOL HYDROCHLORIDE
  38. HYDROCHLOROTHIAZDE [Concomitant]
  39. ATORVASTATIN [Concomitant]
     Active Substance: ATORVASTATIN
  40. LEVOTHYROXINE. [Concomitant]
     Active Substance: LEVOTHYROXINE
  41. LOSARTAN. [Concomitant]
     Active Substance: LOSARTAN
  42. ASPIRIN. [Concomitant]
     Active Substance: ASPIRIN
  43. SMZ [Concomitant]
     Active Substance: SULFAMETHOXAZOLE\TRIMETHOPRIM
  44. KLOR-CON [Concomitant]
     Active Substance: POTASSIUM CHLORIDE
     Route: 065
     Dates: start: 20170328
  45. TRAMADOL. [Concomitant]
     Active Substance: TRAMADOL
  46. JANUMET [Concomitant]
     Active Substance: METFORMIN HYDROCHLORIDE\SITAGLIPTIN PHOSPHATE
  47. BIDIL [Concomitant]
     Active Substance: HYDRALAZINE HYDROCHLORIDE\ISOSORBIDE DINITRATE
  48. TORSEMIDE. [Concomitant]
     Active Substance: TORSEMIDE
  49. VITAMIN C [Concomitant]
     Active Substance: ASCORBIC ACID
     Route: 065
     Dates: start: 20190225
  50. OXYCODONE [Concomitant]
     Active Substance: OXYCODONE
  51. INVOKANA [Concomitant]
     Active Substance: CANAGLIFLOZIN
  52. PAXIL [Concomitant]
     Active Substance: PAROXETINE HYDROCHLORIDE
     Route: 065
     Dates: start: 20170328
  53. CLORPACTIN [Concomitant]
     Route: 065
     Dates: start: 20190222
  54. BYDUREON BCISE [Concomitant]
     Active Substance: EXENATIDE
     Route: 065
     Dates: start: 20190228
  55. CEFIXIME. [Concomitant]
     Active Substance: CEFIXIME
     Dates: start: 20190313
  56. CHLORHEXIDINE [Concomitant]
     Active Substance: CHLORHEXIDINE
  57. ISOSORBIDE. [Concomitant]
     Active Substance: ISOSORBIDE
  58. AZITHROMYCIN ANHYDROUS. [Concomitant]
     Active Substance: AZITHROMYCIN ANHYDROUS
  59. MIRALAX [Concomitant]
     Active Substance: POLYETHYLENE GLYCOL 3350
     Route: 065
     Dates: start: 20190225
  60. ZINCATE [Concomitant]
     Route: 065
     Dates: start: 20190225
  61. HEPARIN [Concomitant]
     Active Substance: HEPARIN SODIUM
     Route: 065
     Dates: start: 20190228
  62. CLONIDINE. [Concomitant]
     Active Substance: CLONIDINE

REACTIONS (14)
  - Fournier^s gangrene [Unknown]
  - Scrotal gangrene [Unknown]
  - Groin abscess [Unknown]
  - Pelvic abscess [Unknown]
  - Scrotal abscess [Unknown]
  - Perineal abscess [Unknown]
  - Septic shock [Unknown]
  - Cellulitis [Unknown]
  - Sepsis [Unknown]
  - Wound abscess [Unknown]
  - Cellulitis gangrenous [Unknown]
  - Genital abscess [Unknown]
  - Urinary tract infection [Unknown]
  - Subcutaneous abscess [Unknown]

NARRATIVE: CASE EVENT DATE: 20190207
